FAERS Safety Report 6742810-1 (Version None)
Quarter: 2010Q2

REPORT INFORMATION
  Report Type: 
  Country: None (occurrence: None)
  Receive Date: 20100526
  Receipt Date: 20100517
  Transmission Date: 20101027
  Serious: Yes (Other)
  Sender: FDA-Public Use
  Company Number: CA-JNJFOC-20100507691

PATIENT
  Sex: Male
  Weight: 54.5 kg

DRUGS (2)
  1. REMICADE [Suspect]
     Indication: CROHN'S DISEASE
     Route: 042
  2. HYDROCORTISONE [Concomitant]
     Indication: PREMEDICATION
     Dosage: 15 MINUTES PRIOR TO INFUSION
     Route: 048

REACTIONS (12)
  - ASTHENIA [None]
  - COUGH [None]
  - DYSPHAGIA [None]
  - ERYTHEMA [None]
  - FATIGUE [None]
  - HOT FLUSH [None]
  - INFUSION RELATED REACTION [None]
  - NAUSEA [None]
  - PALLOR [None]
  - PYREXIA [None]
  - RESPIRATORY RATE INCREASED [None]
  - THROAT IRRITATION [None]
